FAERS Safety Report 12648544 (Version 9)
Quarter: 2017Q1

REPORT INFORMATION
  Report Type: Report from Study
  Country: None (occurrence: FR)
  Receive Date: 20160812
  Receipt Date: 20170103
  Transmission Date: 20170428
  Serious: Yes (Hospitalization)
  Sender: FDA-Public Use
  Company Number: FR-ABBVIE-16P-056-1695229-00

PATIENT
  Age: 72 Year
  Sex: Male
  Weight: 52.5 kg

DRUGS (36)
  1. VENETOCLAX [Suspect]
     Active Substance: VENETOCLAX
     Indication: B-CELL LYMPHOMA
     Dosage: MOST RECENT DOSE(800 MG)RECEIVED PRIOR TO EVENT ON30 JUL 16 + PRIOR TO 2ND ON 22 AUG 16
     Route: 048
     Dates: start: 20160428
  2. RITUXIMAB [Suspect]
     Active Substance: RITUXIMAB
     Indication: B-CELL LYMPHOMA
     Dosage: MOST RECENT DOSE (570 MG) RECEIVED ON 22 JUL 16 + PRIOR TO 2ND ON 12 AUG 16
     Route: 042
     Dates: start: 20160425
  3. RITUXIMAB [Suspect]
     Active Substance: RITUXIMAB
     Indication: DIFFUSE LARGE B-CELL LYMPHOMA
  4. PRAVASTATIN. [Concomitant]
     Active Substance: PRAVASTATIN
     Indication: HYPERCHOLESTEROLAEMIA
     Dates: start: 2006, end: 20160802
  5. ALPRAZOLAM. [Concomitant]
     Active Substance: ALPRAZOLAM
     Indication: ANXIETY
     Dates: start: 2015, end: 20160802
  6. BETAHISTINE [Concomitant]
     Active Substance: BETAHISTINE
     Indication: MENIERE^S DISEASE
     Dates: start: 1983
  7. MOPRAL [Concomitant]
     Active Substance: OMEPRAZOLE SODIUM
     Indication: ABDOMINAL PAIN UPPER
     Dates: start: 20160425
  8. PLATELETS [Concomitant]
     Active Substance: HUMAN PLATELET, ALLOGENIC
     Indication: THROMBOCYTOPENIA
     Dates: start: 20160823, end: 20160823
  9. CIPROFLOXACINE [Concomitant]
     Active Substance: CIPROFLOXACIN
     Indication: PYREXIA
     Dates: start: 20160730, end: 20160731
  10. BEPANTHEN [Concomitant]
     Active Substance: DEXPANTHENOL
     Indication: ANORECTAL DISCOMFORT
     Dates: start: 20160802, end: 20160810
  11. DOXORUBICIN [Suspect]
     Active Substance: DOXORUBICIN
     Indication: B-CELL LYMPHOMA
     Dosage: MOST RECENT DOSE (80 MG) RECEIVED ON 22 JUL 16 + PRIOR TO 2ND EVENT ON 12 AUG 16
     Route: 042
     Dates: start: 20160425
  12. LOVENOX [Concomitant]
     Active Substance: ENOXAPARIN SODIUM
     Indication: THROMBOSIS
     Dates: start: 20160425
  13. OXYNORMORO [Concomitant]
     Active Substance: OXYCODONE
     Indication: PAIN IN EXTREMITY
     Dates: start: 20160429
  14. VINCRISTINE [Suspect]
     Active Substance: VINCRISTINE
     Indication: B-CELL LYMPHOMA
     Dosage: MOST RECENT DOSE (2 MG) RECEIVED ON 22 JUL 16 + PRIOR TO 2ND EVENT ON 12 AUG 1614:04
     Route: 042
     Dates: start: 20160425
  15. APREPITANT. [Concomitant]
     Active Substance: APREPITANT
     Indication: PREMEDICATION
     Dates: start: 20160722, end: 20160722
  16. VENETOCLAX [Suspect]
     Active Substance: VENETOCLAX
     Indication: DIFFUSE LARGE B-CELL LYMPHOMA
  17. CYCLOPHOSPHAMIDE. [Suspect]
     Active Substance: CYCLOPHOSPHAMIDE
     Indication: B-CELL LYMPHOMA
     Dosage: MOST RECENT DOSE (1140 MG)RECEIVED ON 22 JUL 16 + PRIOR TO 2ND ON 12 AUG 16
     Route: 042
     Dates: start: 20160425
  18. PARACETAMOL [Concomitant]
     Active Substance: ACETAMINOPHEN
     Indication: PYREXIA
     Dates: start: 20160823, end: 20160823
  19. POLARAMINE [Concomitant]
     Active Substance: DEXCHLORPHENIRAMINE MALEATE
     Dates: start: 20160722, end: 20160722
  20. DOLIPRANE [Concomitant]
     Active Substance: ACETAMINOPHEN
     Indication: PAIN IN EXTREMITY
     Dates: start: 201602
  21. ZELITREX [Concomitant]
     Active Substance: VALACYCLOVIR HYDROCHLORIDE
     Indication: HERPES ZOSTER
     Dates: start: 20160425
  22. OXYCONTIN [Concomitant]
     Active Substance: OXYCODONE HYDROCHLORIDE
     Indication: PAIN IN EXTREMITY
     Dates: start: 20160429
  23. PAROEX [Concomitant]
     Active Substance: CHLORHEXIDINE GLUCONATE
     Dates: start: 20160825, end: 20160827
  24. FORTIMEL [Concomitant]
     Active Substance: DIETARY SUPPLEMENT
     Indication: WEIGHT DECREASED
     Dates: start: 20160517, end: 20160822
  25. SONDALIS [Concomitant]
     Active Substance: UNSPECIFIED INGREDIENT
     Indication: WEIGHT DECREASED
     Dates: start: 20160823, end: 20160828
  26. KAYEXALATE [Concomitant]
     Active Substance: SODIUM POLYSTYRENE SULFONATE
     Indication: HYPERKALAEMIA
     Dates: start: 20160825, end: 20160825
  27. FLUOXETINE [Concomitant]
     Active Substance: FLUOXETINE HYDROCHLORIDE
     Indication: ANXIETY
     Dates: start: 2015, end: 20160802
  28. FLAGYL [Concomitant]
     Active Substance: METRONIDAZOLE\METRONIDAZOLE HYDROCHLORIDE
     Indication: DIARRHOEA
     Dates: start: 20160730, end: 20160804
  29. RED BLOOD CELLS [Concomitant]
     Active Substance: HUMAN RED BLOOD CELL
     Indication: ANAEMIA
     Dates: start: 20160822, end: 20160823
  30. PAROEX [Concomitant]
     Active Substance: CHLORHEXIDINE GLUCONATE
     Indication: STOMATITIS
     Dates: start: 20160425
  31. AUGMENTIN [Concomitant]
     Active Substance: AMOXICILLIN\CLAVULANATE POTASSIUM
     Indication: PYREXIA
     Dates: start: 20160730, end: 20160731
  32. POLARAMINE [Concomitant]
     Active Substance: DEXCHLORPHENIRAMINE MALEATE
     Indication: STOMATITIS
     Dates: start: 20160825, end: 20160827
  33. POLARAMINE [Concomitant]
     Active Substance: DEXCHLORPHENIRAMINE MALEATE
     Indication: PREMEDICATION
     Dates: start: 20160812, end: 20160812
  34. PREDNISONE. [Suspect]
     Active Substance: PREDNISONE
     Indication: B-CELL LYMPHOMA
     Dosage: MOST RECENT DOSE (100 MG) RECEIVED ON 26 JUL 16 + PRIOR TO 2ND EVENT ON 16 AUG 16 DAYS 1-5
     Route: 048
     Dates: start: 20160425
  35. BACTRIM [Concomitant]
     Active Substance: SULFAMETHOXAZOLE\TRIMETHOPRIM
     Indication: PNEUMOCYSTIS JIROVECII PNEUMONIA
     Dates: start: 20160425
  36. PERFALGAN [Concomitant]
     Active Substance: ACETAMINOPHEN
     Indication: PREMEDICATION
     Dates: start: 20160812, end: 20160812

REACTIONS (2)
  - Febrile neutropenia [Recovered/Resolved]
  - Febrile neutropenia [Recovered/Resolved]

NARRATIVE: CASE EVENT DATE: 20160731
